FAERS Safety Report 5155121-5 (Version None)
Quarter: 2006Q4

REPORT INFORMATION
  Report Type: 
  Country: None (occurrence: None)
  Receive Date: 20061121
  Receipt Date: 20061107
  Transmission Date: 20070319
  Serious: Yes (Other)
  Sender: FDA-Public Use
  Company Number: GB-ELI_LILLY_AND_COMPANY-GB200611001262

PATIENT
  Age: 78 Year
  Sex: Female

DRUGS (4)
  1. FORTEO [Suspect]
     Indication: OSTEOPOROSIS
     Dosage: 20 UG, UNK
     Route: 058
     Dates: start: 20060301, end: 20060809
  2. CALCICHEW-D3 [Concomitant]
     Route: 048
     Dates: start: 19920101
  3. DIHYDROCODEINE BITARTRATE INJ [Concomitant]
     Dosage: 1 D/F, DAILY (1/D)
  4. LACTULOSE [Concomitant]
     Dosage: 1 D/F, 2/D
     Route: 048

REACTIONS (1)
  - ARRHYTHMIA [None]
